FAERS Safety Report 4378037-0 (Version None)
Quarter: 2004Q2

REPORT INFORMATION
  Report Type: 
  Country: None (occurrence: None)
  Receive Date: 20040609
  Receipt Date: 20040527
  Transmission Date: 20050107
  Serious: Yes (Hospitalization)
  Sender: FDA-Public Use
  Company Number: 2004035357

PATIENT
  Age: 63 Year
  Sex: Female

DRUGS (3)
  1. ZOLOFT [Suspect]
     Indication: ILL-DEFINED DISORDER
     Dosage: 100 MG (100 MG, 1 IN 1 D)
     Dates: start: 20000101
  2. DONEPEZIL HCL [Concomitant]
  3. GLYBURIDE [Concomitant]

REACTIONS (2)
  - NEURODERMATITIS [None]
  - PRURITUS [None]
